FAERS Safety Report 22049356 (Version 1)
Quarter: 2023Q1

REPORT INFORMATION
  Report Type: Spontaneous
  Country: US (occurrence: US)
  Receive Date: 20230301
  Receipt Date: 20230301
  Transmission Date: 20230418
  Serious: Yes (Other)
  Sender: FDA-Public Use
  Company Number: US-PFIZER INC-PV202300035162

PATIENT
  Age: 18 Month
  Sex: Female

DRUGS (5)
  1. METHOTREXATE SODIUM [Suspect]
     Active Substance: METHOTREXATE SODIUM
     Indication: Prophylaxis against graft versus host disease
     Dosage: UNK
  2. CYCLOPHOSPHAMIDE [Suspect]
     Active Substance: CYCLOPHOSPHAMIDE
     Indication: Chemotherapy
     Dosage: 1500 MG/M2, 1X/DAY, FOR 3 DAYS
     Dates: start: 19950707
  3. CYCLOPHOSPHAMIDE [Suspect]
     Active Substance: CYCLOPHOSPHAMIDE
     Dosage: 60 MG/KG, 1X/DAY FOR 3 DAYS
     Dates: start: 19960220
  4. CYCLOSPORINE [Suspect]
     Active Substance: CYCLOSPORINE
     Indication: Prophylaxis against graft versus host disease
  5. THIOTEPA [Suspect]
     Active Substance: THIOTEPA
     Indication: Chemotherapy
     Dosage: 300 MG/M2, 1X/DAY FOR 3 DAYS
     Dates: start: 19950707

REACTIONS (3)
  - Chronic graft versus host disease [Not Recovered/Not Resolved]
  - Hyperbilirubinaemia [Recovered/Resolved]
  - Hepatic enzyme increased [Recovered/Resolved]
